FAERS Safety Report 8550072-8 (Version None)
Quarter: 2012Q3

REPORT INFORMATION
  Report Type: 
  Country: None (occurrence: None)
  Receive Date: 20120730
  Receipt Date: 20120718
  Transmission Date: 20120928
  Serious: Yes (Life-Threatening)
  Sender: FDA-Public Use
  Company Number: HU-ROCHE-1080820

PATIENT
  Sex: Male
  Weight: 85 kg

DRUGS (10)
  1. SILYMARIN [Concomitant]
     Indication: LIVER DISORDER
     Route: 048
  2. METHYLPREDNISOLONE [Concomitant]
     Indication: RHEUMATOID ARTHRITIS
     Route: 048
     Dates: start: 20070101
  3. ALLOPURINOL [Concomitant]
     Indication: HYPERURICAEMIA
     Route: 048
     Dates: start: 19960101
  4. METOPROLOL TARTRATE [Concomitant]
     Indication: HYPERTENSION
     Route: 048
     Dates: start: 20110101
  5. METHOTREXATE [Suspect]
     Indication: RHEUMATOID ARTHRITIS
     Route: 048
     Dates: start: 20070101
  6. BETAHISTINE [Concomitant]
     Route: 048
     Dates: start: 20110101
  7. AMLODIPINE BESILATE/LISINOPRIL [Concomitant]
     Indication: HYPERTENSION
     Dosage: 5/10 MG
     Route: 048
     Dates: start: 20110101
  8. ACTEMRA [Suspect]
     Indication: RHEUMATOID ARTHRITIS
     Route: 042
     Dates: start: 20110518
  9. FAMOTIDINE [Concomitant]
     Indication: HYPERCHLORHYDRIA
     Route: 048
     Dates: start: 20070101
  10. INFLIXIMAB [Concomitant]
     Route: 042

REACTIONS (2)
  - ABDOMINAL STRANGULATED HERNIA [None]
  - PERITONITIS [None]
